FAERS Safety Report 20218314 (Version 1)
Quarter: 2021Q4

REPORT INFORMATION
  Report Type: Spontaneous
  Country: US (occurrence: None)
  Receive Date: 20211222
  Receipt Date: 20211222
  Transmission Date: 20220303
  Serious: Yes (Hospitalization)
  Sender: FDA-Public Use
  Company Number: None

PATIENT
  Age: 68 Year
  Sex: Female

DRUGS (1)
  1. ABRAXANE [Suspect]
     Active Substance: PACLITAXEL
     Indication: Cholangiocarcinoma
     Dosage: OTHER FREQUENCY : EVERY 1,8,15;?
     Route: 042

REACTIONS (9)
  - Pyrexia [None]
  - Vomiting [None]
  - Pain [None]
  - Internal haemorrhage [None]
  - Rectal haemorrhage [None]
  - White blood cell count decreased [None]
  - Haemoglobin decreased [None]
  - Platelet count decreased [None]
  - Therapy interrupted [None]

NARRATIVE: CASE EVENT DATE: 20211218
